FAERS Safety Report 8456566-8 (Version None)
Quarter: 2012Q2

REPORT INFORMATION
  Report Type: 
  Country: None (occurrence: None)
  Receive Date: 20120621
  Receipt Date: 20120611
  Transmission Date: 20120825
  Serious: Yes (Other)
  Sender: FDA-Public Use
  Company Number: IT-MERCK-1206USA02777

PATIENT
  Age: 48 Year
  Sex: Male

DRUGS (2)
  1. HYDROCORTONE [Suspect]
     Indication: LARYNGEAL DISORDER
     Route: 048
  2. CHLORPHENIRAMINE MALEATE [Concomitant]
     Indication: LARYNGEAL DISORDER
     Route: 065

REACTIONS (2)
  - ANGIOEDEMA [None]
  - DRUG INEFFECTIVE [None]
